FAERS Safety Report 17072427 (Version 1)
Quarter: 2019Q4

REPORT INFORMATION
  Report Type: Spontaneous
  Country: CA (occurrence: CA)
  Receive Date: 20191125
  Receipt Date: 20191125
  Transmission Date: 20200122
  Serious: Yes (Other)
  Sender: FDA-Public Use
  Company Number: CA-BAYER-2019-206958

PATIENT
  Age: 28 Year
  Sex: Female
  Weight: 54.3 kg

DRUGS (9)
  1. RABEPRAZOLE [Concomitant]
     Active Substance: RABEPRAZOLE
     Dosage: 20 MG
  2. ESCITALOPRAM [Concomitant]
     Active Substance: ESCITALOPRAM OXALATE
     Dosage: 20 MG
  3. VITAMIN D [VITAMIN D NOS] [Concomitant]
     Active Substance: VITAMIN D NOS
  4. PREDNISONE. [Concomitant]
     Active Substance: PREDNISONE
     Dosage: 40 MG(TAPERING DOSE)
     Dates: start: 2019
  5. HUMIRA [Concomitant]
     Active Substance: ADALIMUMAB
  6. MORPHINE [Concomitant]
     Active Substance: MORPHINE
  7. ALEVE [Suspect]
     Active Substance: NAPROXEN SODIUM
  8. CALCIUM [Concomitant]
     Active Substance: CALCIUM
     Dosage: 500 MG, TID
  9. AZATHIOPRINE. [Concomitant]
     Active Substance: AZATHIOPRINE
     Dosage: 50 MG

REACTIONS (1)
  - Crohn^s disease [None]
